FAERS Safety Report 8074407-8 (Version None)
Quarter: 2012Q1

REPORT INFORMATION
  Report Type: 
  Country: None (occurrence: None)
  Receive Date: 20120126
  Receipt Date: 20120125
  Transmission Date: 20120608
  Serious: Yes (Hospitalization)
  Sender: FDA-Public Use
  Company Number: US-GLAXOSMITHKLINE-B0715596A

PATIENT
  Age: 83 Year
  Sex: Male
  Weight: 81.4 kg

DRUGS (9)
  1. SOLU-MEDROL [Concomitant]
  2. INSULIN [Concomitant]
  3. FLONASE [Concomitant]
  4. AMARYL [Concomitant]
  5. PROTONIX [Concomitant]
  6. AVANDIA [Suspect]
     Indication: DIABETES MELLITUS
     Dosage: 4MG PER DAY
     Route: 048
     Dates: start: 20050101, end: 20081108
  7. PROCARDIA [Concomitant]
  8. ZOCOR [Concomitant]
  9. GLIPIZIDE [Concomitant]

REACTIONS (5)
  - CEREBROVASCULAR INSUFFICIENCY [None]
  - VENTRICULAR TACHYCARDIA [None]
  - SUDDEN CARDIAC DEATH [None]
  - CEREBROVASCULAR ACCIDENT [None]
  - MYOCARDIAL INFARCTION [None]
